FAERS Safety Report 25346751 (Version 1)
Quarter: 2025Q2

REPORT INFORMATION
  Report Type: Spontaneous
  Country: PT (occurrence: PT)
  Receive Date: 20250522
  Receipt Date: 20250522
  Transmission Date: 20250717
  Serious: Yes (Hospitalization, Other)
  Sender: AUROBINDO
  Company Number: PT-AUROBINDO-AUR-APL-2025-025279

PATIENT
  Age: 4 Month
  Sex: Male

DRUGS (1)
  1. VANCOMYCIN [Suspect]
     Active Substance: VANCOMYCIN
     Indication: Meningitis pneumococcal
     Dosage: 60 MILLIGRAM/KILOGRAM, FOUR TIMES/DAY
     Route: 065

REACTIONS (1)
  - Drug ineffective [Unknown]
